FAERS Safety Report 8301826-4 (Version None)
Quarter: 2012Q1

REPORT INFORMATION
  Report Type: 
  Country: None (occurrence: None)
  Receive Date: 20120326
  Receipt Date: 20110913
  Transmission Date: 20120608
  Serious: Yes (Disabling)
  Sender: FDA-Public Use
  Company Number: PHHY2010US72143

PATIENT
  Age: 45 Year
  Sex: Male
  Weight: 110 kg

DRUGS (1)
  1. TASIGNA [Suspect]
     Indication: CHRONIC MYELOID LEUKAEMIA
     Dosage: 300 MG, BID, ORAL 300 MG AM AND 150 MG PM, ORAL
     Route: 048
     Dates: start: 20100924

REACTIONS (4)
  - OEDEMA [None]
  - BONE PAIN [None]
  - ERECTION INCREASED [None]
  - ARTHRALGIA [None]
